FAERS Safety Report 22214900 (Version 1)
Quarter: 2023Q2

REPORT INFORMATION
  Report Type: Spontaneous
  Country: FR (occurrence: FR)
  Receive Date: 20230415
  Receipt Date: 20230415
  Transmission Date: 20230722
  Serious: Yes (Life-Threatening, Hospitalization)
  Sender: FDA-Public Use
  Company Number: FR-AFSSAPS-PA2023000866

PATIENT
  Age: 68 Year
  Sex: Female
  Weight: 53.6 kg

DRUGS (3)
  1. GLYBURIDE [Interacting]
     Active Substance: GLYBURIDE
     Indication: Type 2 diabetes mellitus
     Dosage: 1 DOSAGE FORM, 3 TIMES A DAY
     Route: 048
     Dates: start: 20130101, end: 20230319
  2. METRONIDAZOLE [Interacting]
     Active Substance: METRONIDAZOLE
     Indication: Helicobacter infection
     Dosage: 1 DOSAGE FORM, 3 TIMES A DAY
     Route: 048
     Dates: start: 20230316
  3. CLARITHROMYCIN [Interacting]
     Active Substance: CLARITHROMYCIN
     Indication: Helicobacter infection
     Dosage: 2 TABLETS MORNING AND EVENING, ACCORD
     Route: 048
     Dates: start: 20230316

REACTIONS (1)
  - Hypoglycaemia [Recovered/Resolved]

NARRATIVE: CASE EVENT DATE: 20230319
